FAERS Safety Report 14647522 (Version 2)
Quarter: 2018Q2

REPORT INFORMATION
  Report Type: Spontaneous
  Country: US (occurrence: US)
  Receive Date: 20180316
  Receipt Date: 20180511
  Transmission Date: 20180711
  Serious: Yes (Hospitalization, Disabling)
  Sender: FDA-Public Use
  Company Number: US-JNJFOC-20180311828

PATIENT
  Sex: Female
  Weight: 77.11 kg

DRUGS (1)
  1. TREMFYA [Suspect]
     Active Substance: GUSELKUMAB
     Indication: PSORIASIS
     Route: 058
     Dates: start: 20170927, end: 20171220

REACTIONS (6)
  - Abdominal pain upper [Recovering/Resolving]
  - Influenza like illness [Unknown]
  - Diarrhoea [Recovering/Resolving]
  - Arthralgia [Recovering/Resolving]
  - Vomiting [Unknown]
  - Headache [Recovering/Resolving]
